FAERS Safety Report 5613401-0 (Version None)
Quarter: 2008Q1

REPORT INFORMATION
  Report Type: 
  Country: None (occurrence: None)
  Receive Date: 20080129
  Receipt Date: 20080114
  Transmission Date: 20080703
  Serious: Yes (Hospitalization)
  Sender: FDA-Public Use
  Company Number: S08-FRA-00262-01

PATIENT
  Age: 69 Year
  Sex: Male

DRUGS (2)
  1. ESCITALOPRAM [Suspect]
     Indication: DEPRESSION
     Dosage: 20 MG QD PO
     Route: 048
     Dates: start: 20050101, end: 20071111
  2. ANDROTARDYL(TESTOSTERONE ENANTATE) [Concomitant]

REACTIONS (2)
  - CEREBRAL HAEMATOMA [None]
  - HAEMORRHAGIC STROKE [None]
